FAERS Safety Report 12411216 (Version 1)
Quarter: 2016Q2

REPORT INFORMATION
  Report Type: Report from Study
  Country: CA (occurrence: CA)
  Receive Date: 20160527
  Receipt Date: 20160527
  Transmission Date: 20160815
  Serious: Yes (Hospitalization)
  Sender: FDA-Public Use
  Company Number: CA-APOPHARMA USA, INC.-2016AP008554

PATIENT
  Sex: Female
  Weight: 52 kg

DRUGS (1)
  1. DEFERIPRONE [Suspect]
     Active Substance: DEFERIPRONE
     Indication: SICKLE CELL ANAEMIA
     Dosage: 47.5 MG/KG, BID
     Route: 048
     Dates: start: 20110317

REACTIONS (1)
  - Renal disorder [Unknown]
